FAERS Safety Report 4870368-0 (Version None)
Quarter: 2005Q4

REPORT INFORMATION
  Report Type: 
  Country: None (occurrence: None)
  Receive Date: 20051228
  Receipt Date: 20051220
  Transmission Date: 20060501
  Serious: Yes (Death, Hospitalization)
  Sender: FDA-Public Use
  Company Number: 163-20785-05110023

PATIENT
  Age: 49 Year
  Sex: Male

DRUGS (14)
  1. THALOMID [Suspect]
     Indication: FIBROSIS
     Dosage: 50 MG, DAILY, ORAL
     Route: 048
     Dates: start: 20050512, end: 20051026
  2. HEPARIN [Suspect]
     Indication: THROMBOSIS PROPHYLAXIS
  3. ZEMPLAR [Concomitant]
  4. FERRLECIT [Concomitant]
  5. ERYTHROPOIETIN (ERYTHROPOIETIN) [Concomitant]
  6. NEPHROCAPS (NEPHROCAPS) [Concomitant]
  7. ASPIRIN [Concomitant]
  8. PEPCID [Concomitant]
  9. COLCHICUM JTL LIQ [Concomitant]
  10. PROMOD [Concomitant]
  11. CLONAZEPAM [Concomitant]
  12. RENAGEL [Concomitant]
  13. HUMULIN N [Concomitant]
  14. HUMULIN R [Concomitant]

REACTIONS (18)
  - ALANINE AMINOTRANSFERASE INCREASED [None]
  - ASPARTATE AMINOTRANSFERASE INCREASED [None]
  - BLOOD ALKALINE PHOSPHATASE INCREASED [None]
  - BLOOD PRESSURE DECREASED [None]
  - CARDIO-RESPIRATORY ARREST [None]
  - CEREBROVASCULAR ACCIDENT [None]
  - DIABETIC KETOACIDOSIS [None]
  - DISEASE PROGRESSION [None]
  - HEPARIN-INDUCED THROMBOCYTOPENIA [None]
  - HYPERCALCAEMIA [None]
  - HYPERGLYCAEMIA [None]
  - HYPERKALAEMIA [None]
  - LOBAR PNEUMONIA [None]
  - LYMPHOCYTE PERCENTAGE DECREASED [None]
  - MONOCYTE PERCENTAGE INCREASED [None]
  - NEUTROPHIL PERCENTAGE INCREASED [None]
  - PLATELET COUNT DECREASED [None]
  - RENAL FAILURE CHRONIC [None]
